FAERS Safety Report 18907636 (Version 1)
Quarter: 2021Q1

REPORT INFORMATION
  Report Type: Spontaneous
  Country: US (occurrence: US)
  Receive Date: 20210218
  Receipt Date: 20210218
  Transmission Date: 20210420
  Serious: No
  Sender: FDA-Public Use
  Company Number: US-ALLERGAN-2008585US

PATIENT
  Sex: Female

DRUGS (4)
  1. FML [Suspect]
     Active Substance: FLUOROMETHOLONE
     Indication: PROPHYLAXIS
     Dosage: 1 GTT, QD
     Dates: start: 2019
  2. FML FORTE [Concomitant]
     Active Substance: FLUOROMETHOLONE
  3. LUMIGAN [Concomitant]
     Active Substance: BIMATOPROST
     Dosage: 1 GTT, QD
  4. COMBIGAN [Concomitant]
     Active Substance: BRIMONIDINE TARTRATE\TIMOLOL MALEATE
     Dosage: 1 GTT, BID

REACTIONS (2)
  - Crying [Recovered/Resolved]
  - Emotional disorder [Recovered/Resolved]
